FAERS Safety Report 9257364 (Version 1)
Quarter: 2013Q2

REPORT INFORMATION
  Report Type: Spontaneous
  Country: US (occurrence: None)
  Receive Date: 20130423
  Receipt Date: 20130423
  Transmission Date: 20140414
  Serious: No
  Sender: FDA-Public Use
  Company Number: ACO_35567_2013

PATIENT
  Age: 62 Year
  Sex: Female
  Weight: 44 kg

DRUGS (7)
  1. AMPYRA (DALFAMPRIDINE) TABLET, 10 MG [Suspect]
     Indication: MULTIPLE SCLEROSIS
     Dates: start: 201110, end: 20130116
  2. AMPYRA (DALFAMPRIDINE) TABLET, 10 MG [Suspect]
     Indication: GAIT DISTURBANCE
     Dates: start: 201110, end: 20130116
  3. CALCIUM [Concomitant]
  4. MAGNESIUM [Concomitant]
  5. KLONOPIN [Concomitant]
  6. LIOTHYRONINE SODIUM [Concomitant]
  7. LEVOTHYROXINE SODIUM [Concomitant]

REACTIONS (3)
  - Femur fracture [None]
  - Fall [None]
  - Asthenia [None]
